FAERS Safety Report 13670409 (Version 1)
Quarter: 2017Q2

REPORT INFORMATION
  Report Type: Spontaneous
  Country: AU (occurrence: AU)
  Receive Date: 20170620
  Receipt Date: 20170620
  Transmission Date: 20170830
  Serious: Yes (Death)
  Sender: FDA-Public Use
  Company Number: AU-INSYS THERAPEUTICS, INC-INS201706-000383

PATIENT
  Age: 23 Year
  Sex: Female

DRUGS (5)
  1. AMPHETAMINE [Suspect]
     Active Substance: AMPHETAMINE
  2. GAMMA HYDROXYBUTYRATE [Suspect]
     Active Substance: 4-HYDROXYBUTANOIC ACID
  3. ALPRAZOLAM. [Suspect]
     Active Substance: ALPRAZOLAM
  4. ZOLPICLONE [Suspect]
     Active Substance: ZOPICLONE
  5. FENTANYL. [Suspect]
     Active Substance: FENTANYL
     Indication: PRODUCT USED FOR UNKNOWN INDICATION

REACTIONS (2)
  - Overdose [Fatal]
  - Toxicity to various agents [Fatal]

NARRATIVE: CASE EVENT DATE: 201509
